FAERS Safety Report 16203642 (Version 1)
Quarter: 2019Q2

REPORT INFORMATION
  Report Type: Spontaneous
  Country: HU (occurrence: HU)
  Receive Date: 20190416
  Receipt Date: 20190416
  Transmission Date: 20190711
  Serious: Yes (Hospitalization, Other)
  Sender: FDA-Public Use
  Company Number: HU-BIOGEN-2014BI002670

PATIENT
  Age: 51 Year
  Sex: Female

DRUGS (1)
  1. TYSABRI [Suspect]
     Active Substance: NATALIZUMAB
     Indication: MULTIPLE SCLEROSIS
     Route: 042
     Dates: start: 201112, end: 20131219

REACTIONS (3)
  - Nuclear magnetic resonance imaging abnormal [Unknown]
  - Multiple sclerosis relapse [Recovered/Resolved]
  - Hemiparesis [Unknown]

NARRATIVE: CASE EVENT DATE: 2012
